FAERS Safety Report 4658968-4 (Version None)
Quarter: 2005Q2

REPORT INFORMATION
  Report Type: 
  Country: None (occurrence: None)
  Receive Date: 20050509
  Receipt Date: 20050426
  Transmission Date: 20051028
  Serious: Yes (Hospitalization, Disabling)
  Sender: FDA-Public Use
  Company Number: 05P-087-0298541-00

PATIENT
  Age: 72 Year
  Sex: Male

DRUGS (7)
  1. TRICOR [Suspect]
     Indication: HYPERLIPIDAEMIA
     Dosage: 100 MILLICURIES, 2 IN 1 D, ORAL
     Route: 048
     Dates: end: 20040316
  2. AMLODIPINE BESYLATE [Concomitant]
  3. GLYCYOL [Concomitant]
  4. PROHEPAR [Concomitant]
  5. MARZULENE S [Concomitant]
  6. FAMOTIDINE [Concomitant]
  7. MAGNESIUM OXIDE [Concomitant]

REACTIONS (4)
  - PAIN [None]
  - PYREXIA [None]
  - RENAL IMPAIRMENT [None]
  - RHABDOMYOLYSIS [None]
